FAERS Safety Report 4316125-5 (Version None)
Quarter: 2004Q1

REPORT INFORMATION
  Report Type: 
  Country: None (occurrence: None)
  Receive Date: 20040310
  Receipt Date: 20040223
  Transmission Date: 20041129
  Serious: Yes (Hospitalization)
  Sender: FDA-Public Use
  Company Number: 2004193871GB

PATIENT
  Age: 39 Year
  Sex: Female
  Weight: 77 kg

DRUGS (6)
  1. NICORETTE [Suspect]
     Indication: SMOKING CESSATION THERAPY
     Dosage: 4 MG, QD, BUCCAL
     Route: 002
     Dates: start: 20040112, end: 20040119
  2. NICOTINE [Suspect]
     Indication: SMOKING CESSATION THERAPY
     Dosage: 14 MG, QD, TRANSDERMAL
     Route: 062
     Dates: start: 20040102, end: 20040112
  3. CEPHALEXIN [Concomitant]
  4. ^STEROIDS^ [Concomitant]
  5. ^UNSPECIFIED INHALER' [Concomitant]
  6. CIPROFLOXACIN [Concomitant]

REACTIONS (7)
  - ANXIETY [None]
  - CIRCULATORY COLLAPSE [None]
  - DEPRESSION [None]
  - DRUG WITHDRAWAL SYNDROME [None]
  - DYSPNOEA [None]
  - FEELING ABNORMAL [None]
  - PALPITATIONS [None]
